FAERS Safety Report 16794708 (Version 1)
Quarter: 2019Q3

REPORT INFORMATION
  Report Type: Spontaneous
  Country: US (occurrence: US)
  Receive Date: 20190911
  Receipt Date: 20190911
  Transmission Date: 20191005
  Serious: No
  Sender: FDA-Public Use
  Company Number: US-PFIZER INC-2019386191

PATIENT
  Age: 66 Year
  Sex: Female
  Weight: 83.45 kg

DRUGS (1)
  1. CELEBREX [Suspect]
     Active Substance: CELECOXIB
     Indication: ARTHRITIS
     Dosage: UNK, 2X/DAY (MORNING AND NIGHT)

REACTIONS (1)
  - Memory impairment [Unknown]
